FAERS Safety Report 4868026-1 (Version None)
Quarter: 2005Q4

REPORT INFORMATION
  Report Type: 
  Country: None (occurrence: None)
  Receive Date: 20051229
  Receipt Date: 20051220
  Transmission Date: 20060501
  Serious: Yes (Hospitalization, Other)
  Sender: FDA-Public Use
  Company Number: JP-SOLVAY-00305004263

PATIENT
  Age: 13501 Day
  Sex: Female

DRUGS (3)
  1. DEPROMEL 25 [Suspect]
     Indication: DEPRESSION
     Dosage: DAILY DOSE:  UNKNOWN
     Route: 048
  2. AMOBAN [Concomitant]
     Indication: INSOMNIA
     Dosage: DAILY DOSE: 7.5 MILLIGRAM(S)
     Route: 048
  3. EURODIN [Concomitant]
     Indication: INSOMNIA
     Dosage: DAILY DOSE: 2 MILLIGRAM(S)
     Route: 048

REACTIONS (2)
  - BLOOD CREATINE PHOSPHOKINASE INCREASED [None]
  - SUICIDE ATTEMPT [None]
